FAERS Safety Report 8591274-4 (Version None)
Quarter: 2012Q3

REPORT INFORMATION
  Report Type: 
  Country: None (occurrence: None)
  Receive Date: 20120814
  Receipt Date: 20120807
  Transmission Date: 20120928
  Serious: Yes (Hospitalization)
  Sender: FDA-Public Use
  Company Number: FR-BIOGENIDEC-2012BI014448

PATIENT
  Age: 43 Year
  Sex: Female

DRUGS (2)
  1. GILENYA [Concomitant]
     Indication: MULTIPLE SCLEROSIS
     Route: 048
     Dates: start: 20120419
  2. TYSABRI [Suspect]
     Indication: MULTIPLE SCLEROSIS
     Route: 042
     Dates: start: 20080101, end: 20120101

REACTIONS (3)
  - PROGRESSIVE MULTIFOCAL LEUKOENCEPHALOPATHY [None]
  - URINARY TRACT INFECTION [None]
  - REBOUND EFFECT [None]
